FAERS Safety Report 21252028 (Version 1)
Quarter: 2022Q3

REPORT INFORMATION
  Report Type: Report from Study
  Country: GT (occurrence: GT)
  Receive Date: 20220825
  Receipt Date: 20220825
  Transmission Date: 20221026
  Serious: Yes (Hospitalization)
  Sender: FDA-Public Use
  Company Number: GT-NOVARTISPH-NVSC2022GT189007

PATIENT
  Age: 35 Year
  Sex: Female

DRUGS (1)
  1. EXFORGE [Suspect]
     Active Substance: AMLODIPINE BESYLATE\VALSARTAN
     Indication: Product used for unknown indication
     Dosage: 1 DOSAGE FORM (160/10 MG, APPROXIMATELY 25  YEARS AGO)
     Route: 065

REACTIONS (3)
  - Illness [Unknown]
  - Dysstasia [Unknown]
  - Malaise [Unknown]
